FAERS Safety Report 8021351-8 (Version None)
Quarter: 2011Q4

REPORT INFORMATION
  Report Type: 
  Country: None (occurrence: None)
  Receive Date: 20111229
  Receipt Date: 20111219
  Transmission Date: 20120403
  Serious: Yes (Hospitalization)
  Sender: FDA-Public Use
  Company Number: 1000026464

PATIENT
  Age: 43 Year
  Sex: Female

DRUGS (23)
  1. ASPIRIN [Concomitant]
  2. SPIRONOLACTONE [Concomitant]
  3. COREG (CARVEDILOL) (CARVEDILOL) [Concomitant]
  4. ENALAPRIL MALEATE [Concomitant]
  5. EVAMIST (ESTRADIOL) (ESTRADIOL) [Concomitant]
  6. LEVEMIR [Concomitant]
  7. NOVOLOG (INSULIN ASPART) (INSULIN ASPART) [Concomitant]
  8. CARISOPRODOL [Concomitant]
  9. COUMADIN (WARFARIN) (WARFARIN) [Concomitant]
  10. CRESTOR [Concomitant]
  11. NEXIUM [Concomitant]
  12. PROVIGIL [Concomitant]
  13. RANEXA (RANOLAZINE) (RANOLAZINE) [Concomitant]
  14. ATACAND [Concomitant]
  15. POTASSIUM (POTASSIUM) (POTASSIUM) [Concomitant]
  16. ZETIA [Concomitant]
  17. EFFEXOR (VENLAFAXINE HYDROCHLORIDE) (VENLAFAXINE HYDROCHLORIDE) [Concomitant]
  18. SAVELLA [Suspect]
     Indication: FIBROMYALGIA
     Dosage: ORAL
     Route: 048
     Dates: end: 20111214
  19. AMIODARONE HCL [Concomitant]
  20. LISINOPRIL [Concomitant]
  21. NITROSTAT (GLYCERYL TRINITRATE) (GLYCERYL TRINITRATE) [Concomitant]
  22. LASIX [Concomitant]
  23. LORATAB (LORATADINE) (LORATADINE) [Concomitant]

REACTIONS (3)
  - ANGINA PECTORIS [None]
  - NAUSEA [None]
  - VOMITING [None]
